FAERS Safety Report 16866628 (Version 6)
Quarter: 2021Q2

REPORT INFORMATION
  Report Type: Report from Study
  Country: US (occurrence: US)
  Receive Date: 20190930
  Receipt Date: 20210423
  Transmission Date: 20210716
  Serious: Yes (Other)
  Sender: FDA-Public Use
  Company Number: PHEH2019US039892

PATIENT
  Age: 58 Year
  Sex: Female

DRUGS (3)
  1. MAYZENT [Suspect]
     Active Substance: SIPONIMOD
     Dosage: 2 MG, QD
     Route: 048
     Dates: start: 20190920
  2. MAYZENT [Suspect]
     Active Substance: SIPONIMOD
     Indication: MULTIPLE SCLEROSIS
     Dosage: 2 MG, QD
     Route: 065
     Dates: start: 20190730
  3. MAYZENT [Suspect]
     Active Substance: SIPONIMOD
     Dosage: UNK
     Route: 065
     Dates: start: 201909, end: 202101

REACTIONS (7)
  - Fatigue [Unknown]
  - Eye haemorrhage [Not Recovered/Not Resolved]
  - Speech disorder [Unknown]
  - Heart rate decreased [Unknown]
  - Conjunctival haemorrhage [Recovered/Resolved]
  - Feeling abnormal [Unknown]
  - Eye pain [Unknown]

NARRATIVE: CASE EVENT DATE: 20190920
